FAERS Safety Report 19563558 (Version 1)
Quarter: 2021Q3

REPORT INFORMATION
  Report Type: Spontaneous
  Country: US (occurrence: US)
  Receive Date: 20210715
  Receipt Date: 20210715
  Transmission Date: 20211014
  Serious: Yes (Other)
  Sender: FDA-Public Use
  Company Number: US-PFIZER INC-2021826307

PATIENT
  Age: 66 Year
  Sex: Female
  Weight: 113.37 kg

DRUGS (1)
  1. GABAPENTIN. [Suspect]
     Active Substance: GABAPENTIN
     Dosage: UNK

REACTIONS (24)
  - Anaphylactic reaction [Unknown]
  - Swelling [Unknown]
  - Weight increased [Unknown]
  - Vomiting [Unknown]
  - Syncope [Unknown]
  - Impaired work ability [Unknown]
  - Laboratory test abnormal [Unknown]
  - Cardiac murmur [Unknown]
  - Road traffic accident [Unknown]
  - Joint injury [Unknown]
  - Vision blurred [Unknown]
  - Muscular weakness [Unknown]
  - Peripheral swelling [Unknown]
  - Dyspnoea [Unknown]
  - Shock [Unknown]
  - Pneumonia [Unknown]
  - Pain in extremity [Unknown]
  - Ligament injury [Unknown]
  - Abdominal distension [Unknown]
  - Feeling abnormal [Unknown]
  - Feeling drunk [Unknown]
  - Asthenia [Unknown]
  - Throat tightness [Unknown]
  - Asthma [Unknown]
